FAERS Safety Report 20050965 (Version 1)
Quarter: 2021Q4

REPORT INFORMATION
  Report Type: Report from Study
  Country: NL (occurrence: NL)
  Receive Date: 20211110
  Receipt Date: 20211110
  Transmission Date: 20220304
  Serious: Yes (Other)
  Sender: FDA-Public Use
  Company Number: NL-ABBVIE-21K-114-4153349-00

PATIENT
  Sex: Female

DRUGS (11)
  1. VENETOCLAX [Suspect]
     Active Substance: VENETOCLAX
     Indication: Acute myeloid leukaemia
     Route: 048
     Dates: start: 20210426, end: 2021
  2. VENETOCLAX [Suspect]
     Active Substance: VENETOCLAX
     Route: 048
     Dates: start: 2021, end: 2021
  3. VENETOCLAX [Suspect]
     Active Substance: VENETOCLAX
     Route: 048
     Dates: start: 2021, end: 2021
  4. VENETOCLAX [Suspect]
     Active Substance: VENETOCLAX
     Route: 048
     Dates: start: 20210525, end: 2021
  5. VENETOCLAX [Suspect]
     Active Substance: VENETOCLAX
     Route: 048
     Dates: start: 20210623, end: 2021
  6. VENETOCLAX [Suspect]
     Active Substance: VENETOCLAX
     Route: 048
     Dates: start: 20210726, end: 2021
  7. AZACITIDINE [Suspect]
     Active Substance: AZACITIDINE
     Indication: Acute myeloid leukaemia
     Route: 065
     Dates: start: 20210426, end: 2021
  8. AZACITIDINE [Suspect]
     Active Substance: AZACITIDINE
     Route: 065
     Dates: start: 20210525, end: 2021
  9. AZACITIDINE [Suspect]
     Active Substance: AZACITIDINE
     Route: 065
     Dates: start: 20210623, end: 2021
  10. AZACITIDINE [Suspect]
     Active Substance: AZACITIDINE
     Route: 065
     Dates: start: 20210726, end: 2021
  11. AZACITIDINE [Suspect]
     Active Substance: AZACITIDINE
     Route: 065
     Dates: start: 20210830, end: 2021

REACTIONS (3)
  - Cytopenia [Not Recovered/Not Resolved]
  - Acute myeloid leukaemia [Not Recovered/Not Resolved]
  - Off label use [Recovered/Resolved]

NARRATIVE: CASE EVENT DATE: 20210101
